FAERS Safety Report 8018603-4 (Version None)
Quarter: 2012Q1

REPORT INFORMATION
  Report Type: 
  Country: None (occurrence: None)
  Receive Date: 20120103
  Receipt Date: 20111229
  Transmission Date: 20120608
  Serious: Yes (Hospitalization)
  Sender: FDA-Public Use
  Company Number: NL-AMGEN-NLDSP2011069531

PATIENT
  Age: 56 Year
  Sex: Female

DRUGS (4)
  1. NEULASTA [Suspect]
     Indication: CHEMOTHERAPY
     Dosage: 6 MG, AFTER CHEMO
     Route: 058
     Dates: start: 20111201
  2. TAXOTERE [Concomitant]
     Indication: BREAST CANCER
  3. THYRAX                             /00068001/ [Concomitant]
  4. DEXAMETASON [Concomitant]

REACTIONS (4)
  - MALAISE [None]
  - MYALGIA [None]
  - PYREXIA [None]
  - BACK PAIN [None]
